FAERS Safety Report 8064594-X (Version None)
Quarter: 2012Q1

REPORT INFORMATION
  Report Type: 
  Country: None (occurrence: None)
  Receive Date: 20120123
  Receipt Date: 20120119
  Transmission Date: 20120608
  Serious: Yes (Hospitalization, Other)
  Sender: FDA-Public Use
  Company Number: US-MERCK-1106USA01933

PATIENT
  Age: 55 Year
  Sex: Female
  Weight: 72 kg

DRUGS (8)
  1. FOSAMAX [Suspect]
     Route: 048
     Dates: start: 20071002
  2. ASCORBIC ACID [Concomitant]
     Route: 065
  3. FOSAMAX [Suspect]
     Indication: OSTEOPOROSIS
     Route: 048
     Dates: start: 20000101, end: 20081001
  4. ALENDRONATE SODIUM [Suspect]
     Route: 048
     Dates: start: 20080213, end: 20081001
  5. VITAMIN D (UNSPECIFIED) [Concomitant]
     Route: 065
  6. PREDNISONE [Suspect]
     Route: 048
     Dates: start: 19970101
  7. VITAMINS (UNSPECIFIED) [Concomitant]
     Route: 065
  8. CALCIUM (UNSPECIFIED) [Concomitant]
     Route: 065

REACTIONS (61)
  - FEMUR FRACTURE [None]
  - DIARRHOEA [None]
  - GASTROOESOPHAGEAL REFLUX DISEASE [None]
  - OEDEMA PERIPHERAL [None]
  - OSTEOARTHRITIS [None]
  - CONNECTIVE TISSUE DISORDER [None]
  - C-REACTIVE PROTEIN INCREASED [None]
  - THROMBOCYTOSIS [None]
  - INCREASED TENDENCY TO BRUISE [None]
  - HYPERLIPIDAEMIA [None]
  - TOOTH DISORDER [None]
  - PHOTOSENSITIVITY REACTION [None]
  - PLANTAR FASCIITIS [None]
  - MYALGIA [None]
  - CYST [None]
  - CERUMEN IMPACTION [None]
  - HYPOALBUMINAEMIA [None]
  - HEADACHE [None]
  - FOOT FRACTURE [None]
  - TONSILLAR DISORDER [None]
  - ASTHENIA [None]
  - OSTEOPENIA [None]
  - NOCTURIA [None]
  - CATARACT [None]
  - BUNDLE BRANCH BLOCK BILATERAL [None]
  - ADVERSE DRUG REACTION [None]
  - WEIGHT INCREASED [None]
  - VARICOSE VEIN [None]
  - STAPHYLOCOCCAL INFECTION [None]
  - SINUSITIS [None]
  - HYPERGLYCAEMIA [None]
  - TENOSYNOVITIS STENOSANS [None]
  - MUSCLE SPASMS [None]
  - FALL [None]
  - MASS [None]
  - ALOPECIA [None]
  - UPPER RESPIRATORY TRACT INFECTION [None]
  - HYPOAESTHESIA [None]
  - LIMB DISCOMFORT [None]
  - INSOMNIA [None]
  - BONE DENSITY DECREASED [None]
  - HAEMOGLOBIN DECREASED [None]
  - OVERDOSE [None]
  - HYPOPROTEINAEMIA [None]
  - GASTROINTESTINAL DISORDER [None]
  - PYODERMA GANGRENOSUM [None]
  - PYODERMA [None]
  - MYOPATHY [None]
  - LIGAMENT RUPTURE [None]
  - ANAEMIA POSTOPERATIVE [None]
  - WHITE BLOOD CELL COUNT INCREASED [None]
  - STEROID THERAPY [None]
  - BLOOD GLUCOSE INCREASED [None]
  - FATIGUE [None]
  - CARPAL TUNNEL SYNDROME [None]
  - ARTHRALGIA [None]
  - ROAD TRAFFIC ACCIDENT [None]
  - LEUKOCYTOSIS [None]
  - IRRITABILITY [None]
  - EYE IRRITATION [None]
  - DYSPNOEA EXERTIONAL [None]
